FAERS Safety Report 4403208-4 (Version None)
Quarter: 2004Q3

REPORT INFORMATION
  Report Type: 
  Country: None (occurrence: None)
  Receive Date: 20040719
  Receipt Date: 20040706
  Transmission Date: 20050211
  Serious: Yes (Other)
  Sender: FDA-Public Use
  Company Number: 2004035067

PATIENT
  Age: 78 Year
  Sex: Male

DRUGS (1)
  1. LIPITOR [Suspect]
     Indication: ILL-DEFINED DISORDER
     Dosage: (1 IN 1 D), ORAL
     Route: 048

REACTIONS (3)
  - AMNESIA [None]
  - QUADRUPLE VESSEL BYPASS GRAFT [None]
  - STENT PLACEMENT [None]
